FAERS Safety Report 5962320-9 (Version None)
Quarter: 2008Q4

REPORT INFORMATION
  Report Type: 
  Country: None (occurrence: None)
  Receive Date: 20081119
  Receipt Date: 20080808
  Transmission Date: 20090506
  Serious: No
  Sender: FDA-Public Use
  Company Number: WAES 0808USA01673

PATIENT
  Age: 62 Year
  Sex: Female

DRUGS (5)
  1. JANUVIA [Suspect]
     Indication: TYPE 2 DIABETES MELLITUS
     Dosage: 100 MG/DAILY/PO
     Route: 048
  2. ACTOS [Concomitant]
  3. HYZAAR [Concomitant]
  4. SINGULAIR [Concomitant]
  5. TOPROL-XL [Concomitant]

REACTIONS (1)
  - CHOKING SENSATION [None]
